FAERS Safety Report 8543632-1 (Version None)
Quarter: 2012Q3

REPORT INFORMATION
  Report Type: 
  Country: None (occurrence: None)
  Receive Date: 20120727
  Receipt Date: 20120719
  Transmission Date: 20120928
  Serious: Yes (Other)
  Sender: FDA-Public Use
  Company Number: GR-JNJFOC-20120712764

PATIENT
  Age: 38 Year
  Sex: Male

DRUGS (2)
  1. REMICADE [Suspect]
     Indication: PSORIASIS
     Route: 042
     Dates: start: 20071001, end: 20080201
  2. REMICADE [Suspect]
     Indication: NAIL PSORIASIS
     Route: 042
     Dates: start: 20071001, end: 20080201

REACTIONS (2)
  - DENTAL CARIES [None]
  - TOOTH LOSS [None]
